FAERS Safety Report 9743934 (Version 2)
Quarter: 2014Q1

REPORT INFORMATION
  Report Type: Spontaneous
  Country: US (occurrence: US)
  Receive Date: 20131210
  Receipt Date: 20140218
  Transmission Date: 20141002
  Serious: No
  Sender: FDA-Public Use
  Company Number: US-BIOGENIDEC-2013BI098628

PATIENT
  Sex: Female

DRUGS (3)
  1. TECFIDERA [Suspect]
     Indication: MULTIPLE SCLEROSIS
     Dates: start: 201304, end: 201307
  2. TECFIDERA [Suspect]
     Indication: MULTIPLE SCLEROSIS
     Route: 048
     Dates: start: 20130415, end: 20130422
  3. TECFIDERA [Suspect]
     Indication: MULTIPLE SCLEROSIS
     Route: 048
     Dates: start: 20130422, end: 20130715

REACTIONS (11)
  - Alopecia [Recovered/Resolved]
  - Nausea [Unknown]
  - Migraine [Recovered/Resolved]
  - Gastric disorder [Recovered/Resolved]
  - Optic neuritis [Unknown]
  - Scleral discolouration [Not Recovered/Not Resolved]
  - Blindness transient [Unknown]
  - Strabismus [Unknown]
  - Speech disorder [Not Recovered/Not Resolved]
  - Blindness [Recovered/Resolved]
  - Gastrointestinal disorder [Unknown]
